FAERS Safety Report 5529494-5 (Version None)
Quarter: 2007Q4

REPORT INFORMATION
  Report Type: 
  Country: None (occurrence: None)
  Receive Date: 20071129
  Receipt Date: 20071121
  Transmission Date: 20080405
  Serious: Yes (Hospitalization)
  Sender: FDA-Public Use
  Company Number: US-GENENTECH-251692

PATIENT
  Sex: Female

DRUGS (4)
  1. BEVACIZUMAB [Suspect]
     Indication: NEUROBLASTOMA
     Dosage: UNK, UNK
  2. I-131 3F8 [Concomitant]
     Indication: NEUROBLASTOMA
     Dosage: UNK, UNK
     Dates: start: 20070905
  3. LIOTHYRONINE SODIUM [Concomitant]
     Indication: DRUG USE FOR UNKNOWN INDICATION
     Dosage: 1950 A?G, UNK
     Dates: start: 20070101, end: 20071003
  4. POTASSIUM IODIDE [Concomitant]
     Indication: DRUG USE FOR UNKNOWN INDICATION
     Dosage: 195 GTT, UNK
     Dates: start: 20070826

REACTIONS (1)
  - ANAPHYLACTIC SHOCK [None]
